FAERS Safety Report 4514081-8 (Version None)
Quarter: 2005Q1

REPORT INFORMATION
  Report Type: 
  Country: None (occurrence: None)
  Receive Date: 20041124
  Receipt Date: 20041104
  Transmission Date: 20050727
  Serious: Yes (Other)
  Sender: FDA-Public Use
  Company Number: USA041183202

PATIENT
  Age: 58 Year
  Sex: Male

DRUGS (9)
  1. CYMBALTA [Suspect]
     Indication: DEPRESSION
     Dosage: 60 MG/1 DAY
  2. CYMBALTA [Suspect]
     Indication: DIABETIC NEUROPATHY
     Dosage: 60 MG/1 DAY
  3. CYMBALTA [Suspect]
     Indication: NEUROPATHIC PAIN
     Dosage: 60 MG/1 DAY
  4. PLAVIX [Concomitant]
  5. AMARYL (GLIMPEPIRIDE) [Concomitant]
  6. APO-METOPROLOL (METOPROLOL TARTRATE) [Concomitant]
  7. APO-LISINOPRIL (LISINOPRIL) [Concomitant]
  8. NEURONTIN (GABAPENTIN PFIZER) [Concomitant]
  9. LIPITOR [Concomitant]

REACTIONS (4)
  - ALANINE AMINOTRANSFERASE INCREASED [None]
  - ASPARTATE AMINOTRANSFERASE INCREASED [None]
  - BLOOD ALKALINE PHOSPHATASE INCREASED [None]
  - CHOLELITHIASIS [None]
